FAERS Safety Report 8720652 (Version 2)
Quarter: 2012Q4

REPORT INFORMATION
  Report Type: 
  Country: CA (occurrence: CA)
  Receive Date: 20120813
  Receipt Date: 20121120
  Transmission Date: 20130627
  Serious: Yes (Death)
  Sender: FDA-Public Use
  Company Number: CA-ELI_LILLY_AND_COMPANY-CA201208002702

PATIENT
  Age: 79 Year
  Sex: Male
  Weight: 71 kg

DRUGS (7)
  1. ADCIRCA [Suspect]
     Indication: PULMONARY HYPERTENSION
     Dosage: 40 mg, qd
     Route: 048
     Dates: start: 20111221
  2. WARFARIN [Concomitant]
  3. LASIX [Concomitant]
  4. ALLOPURINOL [Concomitant]
  5. DILTIAZEM [Concomitant]
  6. HYDROXYUREA [Concomitant]
  7. SPIRIVA [Concomitant]

REACTIONS (1)
  - Pneumonia [Fatal]
